FAERS Safety Report 6715209-1 (Version None)
Quarter: 2010Q2

REPORT INFORMATION
  Report Type: 
  Country: None (occurrence: None)
  Receive Date: 20100507
  Receipt Date: 20100427
  Transmission Date: 20101027
  Serious: Yes (Hospitalization, Other)
  Sender: FDA-Public Use
  Company Number: CA-JNJFOC-20100107420

PATIENT
  Sex: Female
  Weight: 90 kg

DRUGS (25)
  1. REMICADE [Suspect]
     Indication: CROHN'S DISEASE
     Dosage: (DATES AND FREQUENCY UNSPECIFIED)
     Route: 042
  2. VITAMIN C [Concomitant]
  3. VASOTEC [Concomitant]
  4. MULTI-VITAMINS [Concomitant]
  5. OMEGA 3-6-9 [Concomitant]
  6. MAGNESIUM [Concomitant]
  7. PREVACID [Concomitant]
  8. METOPROLOL SUCCINATE [Concomitant]
  9. APO-WARFARIN [Concomitant]
  10. RATIO-OXYCOCET [Concomitant]
  11. ASPIRIN [Concomitant]
  12. SPIRIVA [Concomitant]
     Route: 055
  13. ADVAIR DISKUS 100/50 [Concomitant]
     Dosage: 250 MDI ^2 PUFFS TWICE A DAY^
     Route: 055
  14. NOVOLIN GE NPH [Concomitant]
     Dosage: AT MEALS AND BEDTIME
  15. NOVO RAPID [Concomitant]
     Dosage: AT MEALS AND BEDTIME
  16. METFORMIN [Concomitant]
  17. PREDNISONE [Concomitant]
     Dosage: (10-20 MG)
  18. HYDROCHLOROTHIAZIDE [Concomitant]
     Dosage: (1/2 TABLET DAILY)
  19. VERAPAMIL [Concomitant]
  20. LIPITOR [Concomitant]
  21. LYRICA [Concomitant]
  22. APO-AMITRIPTYLINE [Concomitant]
     Dosage: 3 TABLETS AT BEDTIME AND 1 TABLET IN THE MORNING
  23. VITAMIN B-12 [Concomitant]
     Dosage: 1200 MCG ONCE/DAY
  24. VITAMIN D [Concomitant]
  25. SLOW FE [Concomitant]

REACTIONS (2)
  - HIP ARTHROPLASTY [None]
  - PNEUMONIA [None]
